FAERS Safety Report 4996173-2 (Version None)
Quarter: 2006Q2

REPORT INFORMATION
  Report Type: 
  Country: None (occurrence: None)
  Receive Date: 20060504
  Receipt Date: 20060420
  Transmission Date: 20061013
  Serious: Yes (Hospitalization, Other)
  Sender: FDA-Public Use
  Company Number: 2006050546

PATIENT
  Age: 59 Year
  Sex: Female
  Weight: 70.8 kg

DRUGS (9)
  1. SUTENT [Suspect]
     Indication: RENAL CELL CARCINOMA STAGE UNSPECIFIED
     Dosage: SEE IMAGE
     Route: 048
     Dates: start: 20060324, end: 20060406
  2. SUTENT [Suspect]
     Indication: RENAL CELL CARCINOMA STAGE UNSPECIFIED
     Dosage: SEE IMAGE
     Route: 048
     Dates: start: 20060407, end: 20060411
  3. ATENOLOL [Concomitant]
  4. CINNARIZINE (CINNARIZINE) [Concomitant]
  5. LEVOTHYROXINE SODIUM [Concomitant]
  6. BENDROFLUAZINE                (BENDROFLUMETHIAZIDE) [Concomitant]
  7. FLUOXETINE [Concomitant]
  8. CO-CODAMOL (CODEINE PHOSPHATE, PARACETAMOL) [Concomitant]
  9. SERC               (BETHAHISTINE HYDROCHLORIDE) [Concomitant]

REACTIONS (13)
  - ASTHENIA [None]
  - BRADYCARDIA [None]
  - CHEST PAIN [None]
  - DIZZINESS [None]
  - DYSPNOEA [None]
  - ELECTROCARDIOGRAM T WAVE INVERSION [None]
  - METASTASES TO LUNG [None]
  - METASTASES TO TRACHEA [None]
  - MUCOSAL INFLAMMATION [None]
  - MYOCARDIAL ISCHAEMIA [None]
  - ORAL INTAKE REDUCED [None]
  - STRIDOR [None]
  - TROPONIN INCREASED [None]
